FAERS Safety Report 8507523 (Version 3)
Quarter: 2012Q4

REPORT INFORMATION
  Report Type: 
  Country: US (occurrence: US)
  Receive Date: 20120412
  Receipt Date: 20121022
  Transmission Date: 20130627
  Serious: No
  Sender: FDA-Public Use
  Company Number: US-ASTRAZENECA-2012SE01825

PATIENT
  Age: 35 Year
  Sex: Male

DRUGS (1)
  1. NEXIUM [Suspect]
     Route: 048

REACTIONS (5)
  - Gastrooesophageal reflux disease [Unknown]
  - Burning sensation [Unknown]
  - Anxiety [Unknown]
  - Vomiting [Unknown]
  - Drug dose omission [Unknown]
